FAERS Safety Report 24811015 (Version 3)
Quarter: 2025Q1

REPORT INFORMATION
  Report Type: Spontaneous
  Country: JP (occurrence: JP)
  Receive Date: 20250106
  Receipt Date: 20250225
  Transmission Date: 20250409
  Serious: No
  Sender: PFIZER
  Company Number: JP-PFIZER INC-PV202400167605

PATIENT

DRUGS (1)
  1. COMIRNATY (RAXTOZINAMERAN) [Suspect]
     Active Substance: RAXTOZINAMERAN
     Indication: COVID-19 immunisation
     Route: 030
     Dates: start: 20241223, end: 20241223

REACTIONS (3)
  - Syringe issue [Unknown]
  - Drug administered in wrong device [Unknown]
  - Poor quality product administered [Unknown]

NARRATIVE: CASE EVENT DATE: 20241223
